FAERS Safety Report 7044491-9 (Version None)
Quarter: 2010Q4

REPORT INFORMATION
  Report Type: 
  Country: None (occurrence: None)
  Receive Date: 20101014
  Receipt Date: 20100412
  Transmission Date: 20110411
  Serious: Yes (Other)
  Sender: FDA-Public Use
  Company Number: US-ASTRAZENECA-2009SE12593

PATIENT
  Age: 16702 Day
  Sex: Male
  Weight: 160.1 kg

DRUGS (5)
  1. SEROQUEL [Suspect]
     Dosage: 100-300 MG
     Route: 048
     Dates: start: 20051118
  2. RISPERIDONE [Concomitant]
     Dosage: 1-4 MG
     Route: 048
     Dates: start: 20060810
  3. HYDROXYZINE PAMOATE [Concomitant]
     Route: 048
     Dates: start: 20060810
  4. HYDROCHLOROTHIAZIDE [Concomitant]
     Route: 048
     Dates: start: 20060621
  5. DIPHENHYDRAMINE [Concomitant]
     Indication: HYPERSENSITIVITY
     Route: 048
     Dates: start: 20060828

REACTIONS (3)
  - DIABETIC NEUROPATHY [None]
  - DIABETIC RETINOPATHY [None]
  - TYPE 2 DIABETES MELLITUS [None]
